FAERS Safety Report 5909059-3 (Version None)
Quarter: 2008Q3

REPORT INFORMATION
  Report Type: 
  Country: None (occurrence: None)
  Receive Date: 20080929
  Receipt Date: 20080915
  Transmission Date: 20090109
  Serious: Yes (Hospitalization)
  Sender: FDA-Public Use
  Company Number: 238387J08USA

PATIENT
  Age: 54 Year
  Sex: Male
  Weight: 86.2 kg

DRUGS (3)
  1. REBIF [Suspect]
     Indication: MULTIPLE SCLEROSIS
     Dosage: 44 MCG, 3 IN 1 WEEKS, SUBCUTANEOUS
     Route: 058
     Dates: start: 20040913
  2. REQUIP [Concomitant]
  3. PAXIL [Concomitant]

REACTIONS (5)
  - BLOOD PRESSURE FLUCTUATION [None]
  - CORONARY ARTERY OCCLUSION [None]
  - INJECTION SITE PAIN [None]
  - INSOMNIA [None]
  - MYOCARDIAL INFARCTION [None]
